FAERS Safety Report 20918870 (Version 1)
Quarter: 2022Q2

REPORT INFORMATION
  Report Type: Spontaneous
  Country: NL (occurrence: NL)
  Receive Date: 20220606
  Receipt Date: 20220606
  Transmission Date: 20220721
  Serious: Yes (Other)
  Sender: FDA-Public Use
  Company Number: None

PATIENT
  Sex: Male
  Weight: 69 kg

DRUGS (2)
  1. LISINOPRIL [Suspect]
     Active Substance: LISINOPRIL
     Indication: Hypertension
     Dosage: STRENGTH: 10 MG, 1 X PER DAY 1 PIECE
     Dates: start: 2016
  2. HYDROCHLOROTHIAZIDE [Concomitant]
     Active Substance: HYDROCHLOROTHIAZIDE
     Dosage: TABLET, 12,5 MG (MILLIGRAM)

REACTIONS (2)
  - Libido decreased [Recovering/Resolving]
  - Erectile dysfunction [Recovered/Resolved]
